FAERS Safety Report 7745309-9 (Version None)
Quarter: 2011Q4

REPORT INFORMATION
  Report Type: 
  Country: None (occurrence: None)
  Receive Date: 20110907
  Receipt Date: 20110826
  Transmission Date: 20120403
  Serious: Yes (Other)
  Sender: FDA-Public Use
  Company Number: DSM-2011-00790

PATIENT
  Age: 59 Year
  Sex: Female

DRUGS (1)
  1. OLMESARTAN MEDOXOMIL/AMLODIPINE BESYLATE/HYDROCHLOROTHIAZIDE [Suspect]
     Indication: HYPERTENSION
     Dosage: 40/10/25 MG, ORAL
     Route: 048
     Dates: start: 20110825, end: 20110825

REACTIONS (4)
  - PALPITATIONS [None]
  - POLYURIA [None]
  - FLUSHING [None]
  - DIZZINESS [None]
